FAERS Safety Report 6152408-4 (Version None)
Quarter: 2009Q2

REPORT INFORMATION
  Report Type: 
  Country: None (occurrence: None)
  Receive Date: 20090409
  Receipt Date: 20090401
  Transmission Date: 20091009
  Serious: Yes (Other)
  Sender: FDA-Public Use
  Company Number: 2009-021

PATIENT
  Age: 16 Month
  Sex: Female
  Weight: 8.4 kg

DRUGS (1)
  1. EPINEPHRINE [Suspect]
     Indication: HAEMOSTASIS
     Dosage: SUBCUTANEOUSLY OR INTRAMUSCULARLY
     Route: 058
     Dates: start: 20090330, end: 20090331

REACTIONS (2)
  - NO THERAPEUTIC RESPONSE [None]
  - WRONG TECHNIQUE IN DRUG USAGE PROCESS [None]
